FAERS Safety Report 9611519 (Version 1)
Quarter: 2013Q4

REPORT INFORMATION
  Report Type: Spontaneous
  Country: US (occurrence: US)
  Receive Date: 20131010
  Receipt Date: 20131010
  Transmission Date: 20140711
  Serious: Yes (Other)
  Sender: FDA-Public Use
  Company Number: US-BRISTOL-MYERS SQUIBB COMPANY-19469113

PATIENT
  Age: 63 Year
  Sex: Male
  Weight: 72.56 kg

DRUGS (16)
  1. LIPITOR [Concomitant]
  2. VITAMIN D3 [Concomitant]
  3. ABILIFY [Suspect]
  4. PLAVIX [Suspect]
  5. ALBUTEROL [Concomitant]
  6. ALLEGRA [Concomitant]
  7. XANAX [Concomitant]
  8. DEPLIN [Concomitant]
  9. TRICOR [Concomitant]
  10. PRISTIQ [Concomitant]
  11. LIOTHYRONINE SODIUM [Concomitant]
  12. SYNTHROID [Concomitant]
  13. TOVIAZ [Concomitant]
  14. TRAMADOL [Concomitant]
  15. TRAZODONE HCL [Concomitant]
  16. MULTIVITAMIN WITH MINERALS [Concomitant]

REACTIONS (3)
  - Vasculitis [Unknown]
  - Coeliac disease [Unknown]
  - Cardiac disorder [Unknown]
